FAERS Safety Report 23857517 (Version 1)
Quarter: 2024Q2

REPORT INFORMATION
  Report Type: Spontaneous
  Country: CN (occurrence: CN)
  Receive Date: 20240515
  Receipt Date: 20240515
  Transmission Date: 20240716
  Serious: Yes (Other)
  Sender: FDA-Public Use
  Company Number: CN-PFIZER INC-PV202400061515

PATIENT
  Age: 64 Year
  Sex: Female

DRUGS (2)
  1. LINEZOLID [Suspect]
     Active Substance: LINEZOLID
     Dosage: 0.6 G, 2X/DAY
     Route: 045
     Dates: start: 20240312, end: 20240321
  2. LINEZOLID [Suspect]
     Active Substance: LINEZOLID
     Dosage: 0.6 G, 2X/DAY
     Route: 045
     Dates: start: 20240329, end: 20240401

REACTIONS (4)
  - Torulopsis infection [Not Recovered/Not Resolved]
  - Systemic candida [Not Recovered/Not Resolved]
  - Urinary tract candidiasis [Not Recovered/Not Resolved]
  - Off label use [Unknown]

NARRATIVE: CASE EVENT DATE: 20240312
